FAERS Safety Report 15459495 (Version 2)
Quarter: 2018Q4

REPORT INFORMATION
  Report Type: Spontaneous
  Country: CO (occurrence: CO)
  Receive Date: 20181003
  Receipt Date: 20181019
  Transmission Date: 20190204
  Serious: Yes (Death, Hospitalization, Other)
  Sender: FDA-Public Use
  Company Number: CO-009507513-1810COL000463

PATIENT
  Age: 76 Year
  Sex: Male

DRUGS (8)
  1. CHLORTHALIDONE. [Concomitant]
     Active Substance: CHLORTHALIDONE
     Dosage: 12.5 MG, 1 DAILY
  2. METOPROLOL. [Concomitant]
     Active Substance: METOPROLOL
     Dosage: 50 MG, 1 DAILY
  3. KEYTRUDA [Suspect]
     Active Substance: PEMBROLIZUMAB
     Indication: LUNG NEOPLASM MALIGNANT
     Dosage: 200 MG, EACH 3 WEEKS
     Route: 042
     Dates: start: 20180919, end: 20180919
  4. LOSARTAN. [Concomitant]
     Active Substance: LOSARTAN
     Indication: HYPERTENSION
  5. INSULIN [Concomitant]
     Active Substance: INSULIN NOS
     Indication: DIABETES MELLITUS
  6. TAMSULOZIN [Concomitant]
     Dosage: 0.4 MG, 1 DAILY
  7. METFORMIN [Concomitant]
     Active Substance: METFORMIN HYDROCHLORIDE
     Indication: DIABETES MELLITUS
     Dosage: 850 MG, UNK
  8. EZATOR [Concomitant]
     Dosage: 10/40 MG, 1 DAILY

REACTIONS (4)
  - Adverse event [Unknown]
  - Blood pressure inadequately controlled [Fatal]
  - Coronary artery disease [Fatal]
  - Renal failure [Fatal]

NARRATIVE: CASE EVENT DATE: 201809
